FAERS Safety Report 10040627 (Version 3)
Quarter: 2014Q3

REPORT INFORMATION
  Report Type: Spontaneous
  Country: US (occurrence: US)
  Receive Date: 20140327
  Receipt Date: 20140703
  Transmission Date: 20150326
  Serious: Yes (Death, Hospitalization)
  Sender: FDA-Public Use
  Company Number: US-GLAXOSMITHKLINE-A1062682A

PATIENT
  Age: 52 Year
  Sex: Male
  Weight: 107.3 kg

DRUGS (7)
  1. ZOLEDRONIC ACID [Concomitant]
     Active Substance: ZOLEDRONIC ACID
     Indication: METASTASES TO BONE
  2. DILAUDID [Concomitant]
     Active Substance: HYDROMORPHONE HYDROCHLORIDE
  3. MEKINIST [Suspect]
     Active Substance: TRAMETINIB DIMETHYL SULFOXIDE
     Indication: METASTATIC MALIGNANT MELANOMA
     Route: 048
     Dates: start: 201310
  4. TAFINLAR [Suspect]
     Active Substance: DABRAFENIB MESYLATE
     Indication: METASTATIC MALIGNANT MELANOMA
     Route: 048
     Dates: start: 201310
  5. YERVOY [Suspect]
     Active Substance: IPILIMUMAB
     Indication: MALIGNANT MELANOMA
     Dosage: 3MGK EVERY 3 WEEKS
     Route: 042
     Dates: start: 20140123
  6. PERCOCET [Concomitant]
     Active Substance: ACETAMINOPHEN\OXYCODONE HYDROCHLORIDE
     Indication: PAIN
  7. ATENOLOL. [Concomitant]
     Active Substance: ATENOLOL
     Indication: HYPERTENSION

REACTIONS (30)
  - Hydronephrosis [Unknown]
  - Dehydration [Unknown]
  - Oedema peripheral [Unknown]
  - Feeling of despair [Recovered/Resolved]
  - Disorientation [Recovered/Resolved]
  - Peripheral swelling [Unknown]
  - Ill-defined disorder [Unknown]
  - Hypophagia [Unknown]
  - Infection [Unknown]
  - Confusional state [Recovered/Resolved]
  - Tremor [Recovered/Resolved]
  - Venous thrombosis [Unknown]
  - Pain [Unknown]
  - Splenomegaly [Unknown]
  - Sepsis [Unknown]
  - Immune system disorder [Unknown]
  - Delusion [Recovered/Resolved]
  - Hospice care [Unknown]
  - Chills [Unknown]
  - Dyspnoea [Recovered/Resolved]
  - Fungal skin infection [Unknown]
  - Adverse drug reaction [Unknown]
  - Gene mutation identification test positive [Unknown]
  - Oxygen supplementation [Unknown]
  - Death [Fatal]
  - Septic shock [Unknown]
  - Pyrexia [Unknown]
  - Pancytopenia [Unknown]
  - Metastatic neoplasm [Unknown]
  - Hyponatraemia [Unknown]

NARRATIVE: CASE EVENT DATE: 20140214
